FAERS Safety Report 8532648-7 (Version None)
Quarter: 2012Q3

REPORT INFORMATION
  Report Type: 
  Country: None (occurrence: None)
  Receive Date: 20120724
  Receipt Date: 20120716
  Transmission Date: 20120928
  Serious: Yes (Life-Threatening)
  Sender: FDA-Public Use
  Company Number: CA-JNJFOC-20120707830

PATIENT
  Sex: Female
  Weight: 86.3 kg

DRUGS (7)
  1. CITALOPRAM [Concomitant]
     Route: 048
  2. TYLENOL NO 4 [Concomitant]
     Route: 048
  3. PREDNISONE [Concomitant]
     Route: 048
  4. REMICADE [Suspect]
     Indication: PSORIASIS
     Route: 042
     Dates: start: 20110516, end: 20120413
  5. VITAMIN D [Concomitant]
     Route: 048
  6. NAPROXEN [Concomitant]
     Route: 048
  7. SENOKOT [Concomitant]
     Route: 048

REACTIONS (1)
  - LUNG NEOPLASM MALIGNANT [None]
